FAERS Safety Report 8366700-6 (Version None)
Quarter: 2012Q2

REPORT INFORMATION
  Report Type: 
  Country: None (occurrence: None)
  Receive Date: 20120517
  Receipt Date: 20120510
  Transmission Date: 20120825
  Serious: No
  Sender: FDA-Public Use
  Company Number: US-PFIZER INC-2012092438

PATIENT
  Sex: Female

DRUGS (16)
  1. NAPROSYN [Concomitant]
     Dosage: UNK
  2. SENNA [Concomitant]
     Dosage: UNK
  3. XALKORI [Suspect]
     Indication: LUNG ADENOCARCINOMA
     Dosage: UNK
     Route: 048
     Dates: start: 20120120, end: 20120208
  4. LORAZEPAM [Concomitant]
     Dosage: UNK
  5. XALKORI [Suspect]
     Dosage: 200 MG, 2X/DAY
     Route: 048
     Dates: start: 20120413
  6. DIFLUCAN [Concomitant]
     Dosage: UNK
  7. ZOFRAN [Concomitant]
     Dosage: UNK
  8. XALKORI [Suspect]
     Dosage: UNK
     Route: 048
     Dates: start: 20120214, end: 20120215
  9. DILAUDID [Concomitant]
     Dosage: UNK
  10. LACTOBACILLUS ACIDOPHILUS [Concomitant]
     Dosage: UNK
  11. COLACE [Concomitant]
     Dosage: UNK
  12. FOLIC ACID [Concomitant]
     Dosage: UNK
  13. MEGACE [Concomitant]
     Dosage: UNK
  14. OMEPRAZOLE [Concomitant]
     Dosage: UNK
  15. OXYCODONE [Concomitant]
     Dosage: UNK
  16. COMPAZINE [Concomitant]
     Dosage: UNK

REACTIONS (2)
  - URTICARIA [None]
  - RASH MACULO-PAPULAR [None]
